FAERS Safety Report 5305599-9 (Version None)
Quarter: 2007Q2

REPORT INFORMATION
  Report Type: 
  Country: None (occurrence: None)
  Receive Date: 20070424
  Receipt Date: 20070411
  Transmission Date: 20071010
  Serious: Yes (Hospitalization, Other)
  Sender: FDA-Public Use
  Company Number: US-AMGEN-STX214271

PATIENT
  Sex: Female
  Weight: 62.7 kg

DRUGS (14)
  1. ENBREL [Suspect]
     Indication: RHEUMATOID ARTHRITIS
     Route: 058
     Dates: start: 20061110
  2. PROCRIT [Suspect]
     Indication: DRUG USE FOR UNKNOWN INDICATION
     Route: 058
  3. COUMADIN [Suspect]
     Route: 065
  4. ARAVA [Concomitant]
     Route: 065
  5. PREDNISONE TAB [Concomitant]
     Route: 065
  6. SYNTHROID [Concomitant]
     Route: 065
  7. NU-IRON [Concomitant]
     Route: 065
  8. KLOR-CON [Concomitant]
     Route: 065
  9. LESCOL [Concomitant]
     Route: 065
  10. FOSAMAX [Concomitant]
     Route: 065
  11. COREG [Concomitant]
     Route: 065
  12. LASIX [Concomitant]
     Route: 065
  13. FOLIC ACID [Concomitant]
     Route: 065
  14. LIMBREL [Concomitant]
     Route: 065

REACTIONS (16)
  - ANTICOAGULATION DRUG LEVEL ABOVE THERAPEUTIC [None]
  - ARTHRALGIA [None]
  - COUGH [None]
  - DIARRHOEA [None]
  - FATIGUE [None]
  - FOOT OPERATION [None]
  - GASTROENTERITIS VIRAL [None]
  - GASTROINTESTINAL HAEMORRHAGE [None]
  - HAEMOGLOBIN DECREASED [None]
  - MALAISE [None]
  - MEDIASTINAL MASS [None]
  - NOCTURIA [None]
  - POLYURIA [None]
  - RESPIRATORY TRACT CONGESTION [None]
  - SYNOVITIS [None]
  - THYROID FUNCTION TEST ABNORMAL [None]
